FAERS Safety Report 8825315 (Version 2)
Quarter: 2014Q3

REPORT INFORMATION
  Report Type: Report from Study
  Country: US (occurrence: US)
  Receive Date: 20121004
  Receipt Date: 20140903
  Transmission Date: 20150326
  Serious: Yes (Other)
  Sender: FDA-Public Use
  Company Number: US-ROCHE-1134954

PATIENT
  Sex: Female

DRUGS (1)
  1. RITUXAN [Suspect]
     Active Substance: RITUXIMAB
     Indication: CHRONIC LYMPHOCYTIC LEUKAEMIA
     Route: 042

REACTIONS (8)
  - Anaemia [Unknown]
  - Off label use [Unknown]
  - Abdominal pain upper [Unknown]
  - Infusion related reaction [Unknown]
  - Cholelithiasis [Unknown]
  - Nausea [Unknown]
  - Thrombocytopenia [Unknown]
  - White blood cell count increased [Unknown]
